FAERS Safety Report 9614453 (Version 1)
Quarter: 2013Q4

REPORT INFORMATION
  Report Type: Spontaneous
  Country: US (occurrence: US)
  Receive Date: 20131011
  Receipt Date: 20131011
  Transmission Date: 20140711
  Serious: Yes (Other)
  Sender: FDA-Public Use
  Company Number: US-ACCORD-019825

PATIENT
  Age: 44 Year
  Sex: Female

DRUGS (5)
  1. LISINOPRIL [Concomitant]
  2. TACROLIMUS [Suspect]
     Indication: LUPUS NEPHRITIS
     Dosage: 3 MG QAM/2MG QHS
  3. MYCOPHENOLATE MOFETIL [Suspect]
     Indication: LUPUS NEPHRITIS
  4. HYDROXYCHLOROQUINE [Suspect]
     Indication: LUPUS NEPHRITIS
  5. PREDNISONE [Suspect]
     Indication: LUPUS NEPHRITIS

REACTIONS (3)
  - Tooth abscess [Unknown]
  - Off label use [Unknown]
  - Treatment failure [Unknown]
